FAERS Safety Report 15680572 (Version 1)
Quarter: 2018Q4

REPORT INFORMATION
  Report Type: Spontaneous
  Country: US (occurrence: US)
  Receive Date: 20181202
  Receipt Date: 20181202
  Transmission Date: 20190205
  Serious: Yes (Death)
  Sender: FDA-Public Use
  Company Number: None

PATIENT
  Age: 76 Year
  Sex: Female
  Weight: 40.95 kg

DRUGS (2)
  1. RIVASTIGMINE TRANSDERMAL SYSTEM 9.5MG/ 24 HOURS LOT 3093500 [Suspect]
     Active Substance: RIVASTIGMINE
     Indication: DEMENTIA
     Dosage: ?          QUANTITY:1 PATCH(ES);?
     Route: 062
     Dates: start: 20181107, end: 20181121
  2. RIVASTIGMINE TRANSDERMAL SYSTEM 9.5MG/ 24 HOURS LOT 3093500 [Suspect]
     Active Substance: RIVASTIGMINE
     Indication: DEMENTIA ALZHEIMER^S TYPE
     Dosage: ?          QUANTITY:1 PATCH(ES);?
     Route: 062
     Dates: start: 20181107, end: 20181121

REACTIONS (1)
  - General physical health deterioration [None]

NARRATIVE: CASE EVENT DATE: 20181112
